FAERS Safety Report 5494567-2 (Version None)
Quarter: 2007Q4

REPORT INFORMATION
  Report Type: 
  Country: None (occurrence: None)
  Receive Date: 20071022
  Receipt Date: 20071011
  Transmission Date: 20080405
  Serious: Yes (Death)
  Sender: FDA-Public Use
  Company Number: CERZ-11214

PATIENT
  Age: 5 Year
  Sex: Male
  Weight: 15 kg

DRUGS (9)
  1. CEREZYME [Suspect]
     Indication: GAUCHER'S DISEASE
     Dosage: 1200 UNITS Q2WKS IV
     Route: 042
     Dates: start: 20020529, end: 20060418
  2. VALPROATE SODIUM [Concomitant]
  3. POTASSIUM BROMIDE [Concomitant]
  4. PHENOBARBITAL TAB [Concomitant]
  5. PHENYTOIN [Concomitant]
  6. HALOPERIDOL [Concomitant]
  7. CLONAZEPAM [Concomitant]
  8. MOSAPRIDE CITRATE [Concomitant]
  9. MECOBALAMIN [Concomitant]

REACTIONS (4)
  - BLOOD PRESSURE DECREASED [None]
  - DIALYSIS [None]
  - HEPATITIS FULMINANT [None]
  - SEPSIS [None]
